FAERS Safety Report 5628701-8 (Version None)
Quarter: 2008Q1

REPORT INFORMATION
  Report Type: 
  Country: None (occurrence: None)
  Receive Date: 20080215
  Receipt Date: 20080215
  Transmission Date: 20080703
  Serious: No
  Sender: FDA-Public Use
  Company Number: None

PATIENT
  Sex: Female
  Weight: 46 kg

DRUGS (2)
  1. OMNISCAN [Suspect]
     Indication: BRAIN ABSCESS
     Dosage: 10 CC IV
     Route: 042
     Dates: start: 20051028
  2. OMNISCAN [Suspect]
     Indication: BRAIN ABSCESS
     Dosage: 11 CC IV
     Route: 042
     Dates: start: 20070125

REACTIONS (1)
  - NEPHROGENIC SYSTEMIC FIBROSIS [None]
